FAERS Safety Report 8770047 (Version 2)
Quarter: 2014Q1

REPORT INFORMATION
  Report Type: Spontaneous
  Country: US (occurrence: US)
  Receive Date: 20120905
  Receipt Date: 20140206
  Transmission Date: 20141002
  Serious: No
  Sender: FDA-Public Use
  Company Number: US-BIOGENIDEC-2012BI035186

PATIENT
  Sex: Female

DRUGS (1)
  1. AVONEX [Suspect]
     Indication: MULTIPLE SCLEROSIS
     Route: 030
     Dates: start: 20120316

REACTIONS (12)
  - Nocturia [Recovered/Resolved]
  - Mobility decreased [Not Recovered/Not Resolved]
  - Gastric disorder [Unknown]
  - Speech disorder [Unknown]
  - Fall [Recovered/Resolved]
  - Joint injury [Recovered/Resolved]
  - Syncope [Not Recovered/Not Resolved]
  - Multiple sclerosis relapse [Recovered/Resolved]
  - Fatigue [Recovered/Resolved]
  - Depressed mood [Recovered/Resolved]
  - Influenza like illness [Unknown]
  - Anxiety [Unknown]
